FAERS Safety Report 4999230-X (Version None)
Quarter: 2006Q2

REPORT INFORMATION
  Report Type: 
  Country: None (occurrence: None)
  Receive Date: 20060509
  Receipt Date: 20060509
  Transmission Date: 20061013
  Serious: Yes (Hospitalization)
  Sender: FDA-Public Use
  Company Number: None

PATIENT
  Sex: Male
  Weight: 15 kg

DRUGS (2)
  1. ACCUTANE [Suspect]
     Indication: NEUROBLASTOMA
     Dosage: 2880 MG
     Dates: start: 20060321, end: 20060426
  2. HYDROCHLOROHIAZIDE [Concomitant]

REACTIONS (4)
  - ABDOMINAL PAIN [None]
  - BLOOD CALCIUM INCREASED [None]
  - PAIN IN EXTREMITY [None]
  - PYREXIA [None]
